FAERS Safety Report 7659607 (Version 2)
Quarter: 2021Q1

REPORT INFORMATION
  Report Type: Spontaneous
  Country: IT (occurrence: IT)
  Receive Date: 20101108
  Receipt Date: 20210115
  Transmission Date: 20210420
  Serious: Yes (Hospitalization)
  Sender: FDA-Public Use
  Company Number: US-ASTRAZENECA-2010SE51275

PATIENT
  Age: 66 Year
  Sex: Male

DRUGS (5)
  1. SILDENAFIL. [Interacting]
     Active Substance: SILDENAFIL
     Dosage: ONE SINGLE DOSE
  2. ROSUVASTATIN. [Suspect]
     Active Substance: ROSUVASTATIN
     Route: 048
  3. SILDENAFIL. [Interacting]
     Active Substance: SILDENAFIL
     Dosage: INFREQUENTLY BEFORE ROSUVASTATIN WAS STARTED
  4. LOSARTAN. [Concomitant]
     Active Substance: LOSARTAN
     Indication: HYPERTENSION
  5. METFORMIN [Concomitant]
     Active Substance: METFORMIN HYDROCHLORIDE
     Indication: DIABETES MELLITUS

REACTIONS (4)
  - Rhabdomyolysis [Unknown]
  - Myopathy [Unknown]
  - Drug interaction [Unknown]
  - Spontaneous penile erection [Unknown]
